FAERS Safety Report 12451831 (Version 1)
Quarter: 2016Q2

REPORT INFORMATION
  Report Type: Spontaneous
  Country: US (occurrence: US)
  Receive Date: 20160609
  Receipt Date: 20160609
  Transmission Date: 20160815
  Serious: No
  Sender: FDA-Public Use
  Company Number: US-GILEAD-2016-0217454

PATIENT
  Age: 58 Year
  Sex: Male

DRUGS (4)
  1. RANEXA [Suspect]
     Active Substance: RANOLAZINE
     Indication: PRODUCT USED FOR UNKNOWN INDICATION
     Dosage: 1000 MG, BID
     Route: 065
  2. ATENOLOL. [Concomitant]
     Active Substance: ATENOLOL
     Indication: HYPERTENSION
  3. PLAVIX [Concomitant]
     Active Substance: CLOPIDOGREL BISULFATE
     Indication: HYPERTENSION
  4. LEVOFLOXACIN. [Concomitant]
     Active Substance: LEVOFLOXACIN
     Indication: SINUSITIS

REACTIONS (8)
  - Hypertension [Unknown]
  - Sinusitis [Unknown]
  - Fatigue [Unknown]
  - Irritability [Unknown]
  - Wrong technique in product usage process [Unknown]
  - Constipation [Unknown]
  - Asthenia [Unknown]
  - Dizziness [Unknown]
